FAERS Safety Report 8008754 (Version 7)
Quarter: 2012Q4

REPORT INFORMATION
  Report Type: 
  Country: US (occurrence: US)
  Receive Date: 20110624
  Receipt Date: 20121120
  Transmission Date: 20130627
  Serious: Yes (Hospitalization, Disabling, Other)
  Sender: FDA-Public Use
  Company Number: US-MERCK-1106USA03115

PATIENT

DRUGS (16)
  1. FOSAMAX [Suspect]
     Indication: OSTEOPENIA
     Dosage: 70 mg, QW
     Route: 048
     Dates: start: 20020713, end: 200906
  2. FOSAMAX [Suspect]
     Dosage: 70 mg, QW
     Route: 048
     Dates: start: 20080906
  3. GLEEVEC [Concomitant]
     Dates: start: 199912
  4. NEURONTIN [Concomitant]
     Dates: start: 199906
  5. DONNATAL [Concomitant]
     Dates: start: 199904
  6. VERAPAMIL [Concomitant]
     Dates: start: 200210
  7. LOMOTIL [Concomitant]
     Dates: start: 199904
  8. KLONOPIN [Concomitant]
     Dates: start: 199904
  9. PRILOSEC [Concomitant]
     Dates: start: 199210
  10. ZOLOFT [Concomitant]
     Dates: start: 199905
  11. PATANOL [Concomitant]
     Dates: start: 199209
  12. IMITREX (SUMATRIPTAN) [Concomitant]
     Dates: start: 199911, end: 2006
  13. MK-9278 [Concomitant]
  14. PREMARIN [Concomitant]
     Dosage: UNK mg, UNK
     Dates: start: 1990, end: 2002
  15. FOSAMAX [Suspect]
     Dosage: 70 mg, QW
     Route: 048
     Dates: start: 20091020
  16. FOSAMAX [Suspect]
     Dosage: 70 mg, QW
     Route: 048
     Dates: start: 20090823

REACTIONS (40)
  - Femur fracture [Recovered/Resolved]
  - Femur fracture [Not Recovered/Not Resolved]
  - Low turnover osteopathy [Not Recovered/Not Resolved]
  - Osteoporosis [Not Recovered/Not Resolved]
  - Vitamin D decreased [Unknown]
  - Sciatica [Not Recovered/Not Resolved]
  - Swelling [Not Recovered/Not Resolved]
  - Breast neoplasm [Unknown]
  - Fall [Unknown]
  - Hypertriglyceridaemia [Unknown]
  - Non-cardiac chest pain [Not Recovered/Not Resolved]
  - Palpitations [Not Recovered/Not Resolved]
  - Vision blurred [Unknown]
  - Upper respiratory tract infection [Unknown]
  - Nasal septum deviation [Unknown]
  - Dysphonia [Unknown]
  - Dry mouth [Unknown]
  - Pericardial effusion [Not Recovered/Not Resolved]
  - Mitral valve calcification [Unknown]
  - Bursitis [Unknown]
  - Dermatitis [Unknown]
  - Joint hyperextension [Unknown]
  - Joint effusion [Unknown]
  - Ligament sprain [Unknown]
  - Exostosis [Unknown]
  - Fall [Unknown]
  - Epicondylitis [Unknown]
  - Trigger finger [Unknown]
  - Tendinous contracture [Recovering/Resolving]
  - Adverse drug reaction [Unknown]
  - Stress fracture [Unknown]
  - Sleep apnoea syndrome [Unknown]
  - Micturition urgency [Unknown]
  - Pollakiuria [Unknown]
  - Muscle spasms [Not Recovered/Not Resolved]
  - Eyelid oedema [Not Recovered/Not Resolved]
  - Dysphagia [Unknown]
  - Arthralgia [Unknown]
  - Pain in extremity [Unknown]
  - Pain in extremity [Unknown]
